FAERS Safety Report 4428356-4 (Version None)
Quarter: 2004Q3

REPORT INFORMATION
  Report Type: 
  Country: None (occurrence: None)
  Receive Date: 20040813
  Receipt Date: 20040730
  Transmission Date: 20050211
  Serious: Yes (Hospitalization, Other)
  Sender: FDA-Public Use
  Company Number: 2004US000919

PATIENT
  Age: 50 Year
  Sex: Male

DRUGS (3)
  1. PROGRAF [Suspect]
     Indication: PANCREAS TRANSPLANT
  2. MYCOPHENOLATE MOFETIL (MYCOPHENOLATE MOFETIL) [Suspect]
     Dosage: 2.00 G, UID/QD
  3. PREDNISONE TAB [Suspect]

REACTIONS (6)
  - DIALYSIS [None]
  - GLOMERULONEPHRITIS ACUTE [None]
  - POLYOMAVIRUS INTERSTITIAL NEPHRITIS [None]
  - RENAL IMPAIRMENT [None]
  - RENAL TRANSPLANT [None]
  - TRANSPLANT REJECTION [None]
